FAERS Safety Report 6324526-9 (Version None)
Quarter: 2009Q3

REPORT INFORMATION
  Report Type: 
  Country: None (occurrence: None)
  Receive Date: 20090824
  Receipt Date: 20090511
  Transmission Date: 20100115
  Serious: No
  Sender: FDA-Public Use
  Company Number: US-ABBOTT-09P-163-0572706-00

PATIENT
  Sex: Male
  Weight: 90.8 kg

DRUGS (8)
  1. NIASPAN [Suspect]
     Indication: BLOOD CHOLESTEROL INCREASED
     Dates: start: 20090411
  2. CRESTOR [Concomitant]
     Indication: BLOOD CHOLESTEROL INCREASED
  3. LISINOPRIL [Concomitant]
     Indication: HYPERTENSION
  4. DITROPAN [Concomitant]
     Indication: URINARY INCONTINENCE
  5. SYNTHROID [Concomitant]
     Indication: THYROIDECTOMY
  6. ALLOPURINOL [Concomitant]
     Indication: GOUT
  7. IRON [Concomitant]
     Indication: ULCER HAEMORRHAGE
  8. FOLIC ACID [Concomitant]
     Indication: DRUG USE FOR UNKNOWN INDICATION

REACTIONS (3)
  - FLUSHING [None]
  - MUSCLE SPASMS [None]
  - PRURITUS [None]
